FAERS Safety Report 7845690-6 (Version None)
Quarter: 2011Q4

REPORT INFORMATION
  Report Type: 
  Country: None (occurrence: None)
  Receive Date: 20111025
  Receipt Date: 20111011
  Transmission Date: 20120403
  Serious: No
  Sender: FDA-Public Use
  Company Number: US-ROXANE LABORATORIES, INC.-2011-RO-01458RO

PATIENT
  Sex: Female

DRUGS (2)
  1. CALCIUM CARBONATE [Suspect]
     Indication: CALCIUM DEFICIENCY
     Route: 048
     Dates: start: 20100101
  2. VITAMIN D [Concomitant]

REACTIONS (1)
  - PRODUCT TASTE ABNORMAL [None]
